FAERS Safety Report 19870640 (Version 1)
Quarter: 2021Q3

REPORT INFORMATION
  Report Type: Spontaneous
  Country: TR (occurrence: TR)
  Receive Date: 20210923
  Receipt Date: 20210923
  Transmission Date: 20211014
  Serious: Yes (Other)
  Sender: FDA-Public Use
  Company Number: TR-SUN PHARMACEUTICAL INDUSTRIES LTD-2021RR-312182

PATIENT
  Age: 66 Year
  Sex: Male

DRUGS (14)
  1. VINCRISTINE [Suspect]
     Active Substance: VINCRISTINE
     Indication: PLASMA CELL MYELOMA
     Dosage: UNK, 2 CYCLES
     Route: 065
     Dates: start: 200709, end: 200711
  2. CYCLOPHOSPHAMIDE. [Suspect]
     Active Substance: CYCLOPHOSPHAMIDE
     Dosage: UNK, 8 CYCLES
     Route: 065
     Dates: start: 201102, end: 201110
  3. POMALIDOMIDE [Suspect]
     Active Substance: POMALIDOMIDE
     Indication: PLASMA CELL MYELOMA
     Dosage: UNK
     Route: 065
  4. DEXAMETHASONE. [Suspect]
     Active Substance: DEXAMETHASONE
     Dosage: UNK, 8 CYCLES
     Route: 065
     Dates: start: 201102, end: 201110
  5. CYCLOPHOSPHAMIDE. [Suspect]
     Active Substance: CYCLOPHOSPHAMIDE
     Indication: PLASMA CELL MYELOMA
     Dosage: UNK, 6 CYCLES
     Route: 065
     Dates: start: 200712, end: 200809
  6. LENALIDOMIDE [Suspect]
     Active Substance: LENALIDOMIDE
     Indication: PLASMA CELL MYELOMA
     Dosage: UNK, 24 CYCLES
     Route: 065
     Dates: start: 201306, end: 201601
  7. DEXAMETHASONE. [Suspect]
     Active Substance: DEXAMETHASONE
     Dosage: UNK, 6 CYCLES
     Route: 065
     Dates: start: 200712, end: 200809
  8. DOXORUBICIN [Suspect]
     Active Substance: DOXORUBICIN
     Indication: PLASMA CELL MYELOMA
     Dosage: UNK, 2 CYCLES
     Route: 065
     Dates: start: 200709, end: 200711
  9. DEXAMETHASONE. [Suspect]
     Active Substance: DEXAMETHASONE
     Indication: PLASMA CELL MYELOMA
     Dosage: UNK, 2 CYCLES
     Route: 065
     Dates: start: 200709, end: 200711
  10. DEXAMETHASONE. [Suspect]
     Active Substance: DEXAMETHASONE
     Dosage: UNK, 24 CYCLES
     Route: 065
     Dates: start: 201306, end: 201601
  11. BORTEZOMIB. [Suspect]
     Active Substance: BORTEZOMIB
     Indication: PLASMA CELL MYELOMA
     Dosage: UNK, 6 CYCLES
     Route: 065
     Dates: start: 200712, end: 200809
  12. BORTEZOMIB. [Suspect]
     Active Substance: BORTEZOMIB
     Dosage: UNK, 8 CYCLES
     Route: 065
     Dates: start: 201102, end: 201110
  13. MELPHALAN. [Suspect]
     Active Substance: MELPHALAN
     Indication: AUTOLOGOUS HAEMATOPOIETIC STEM CELL TRANSPLANT
     Dosage: 200 MG/M2
     Route: 065
     Dates: start: 200901
  14. MELPHALAN. [Suspect]
     Active Substance: MELPHALAN
     Dosage: 140 MG/M2
     Route: 065
     Dates: start: 201204

REACTIONS (4)
  - Disease progression [Unknown]
  - Therapeutic product effect incomplete [Unknown]
  - Isosporiasis [Recovering/Resolving]
  - Disease recurrence [Unknown]
